FAERS Safety Report 25871549 (Version 1)
Quarter: 2025Q4

REPORT INFORMATION
  Report Type: Spontaneous
  Country: JP (occurrence: JP)
  Receive Date: 20251001
  Receipt Date: 20251001
  Transmission Date: 20260118
  Serious: Yes (Death, Other)
  Sender: KYOWA
  Company Number: JP-KYOWAKIRIN-2025KK013781

PATIENT

DRUGS (1)
  1. POTELIGEO [Suspect]
     Active Substance: MOGAMULIZUMAB-KPKC
     Indication: Product used for unknown indication
     Dosage: UNK
     Route: 041
     Dates: start: 202503, end: 202504

REACTIONS (4)
  - Guillain-Barre syndrome [Fatal]
  - Condition aggravated [Unknown]
  - Skin disorder [Unknown]
  - Adverse event [Unknown]
